FAERS Safety Report 8939319 (Version 4)
Quarter: 2013Q1

REPORT INFORMATION
  Report Type: Spontaneous
  Country: JP (occurrence: JP)
  Receive Date: 20121203
  Receipt Date: 20130118
  Transmission Date: 20140127
  Serious: Yes (Death)
  Sender: FDA-Public Use
  Company Number: JP-JNJFOC-20121112520

PATIENT
  Age: 63 Year
  Sex: Female

DRUGS (6)
  1. SIMPONI [Suspect]
     Indication: RHEUMATOID ARTHRITIS
     Route: 058
     Dates: start: 20120214, end: 20120214
  2. FRUCTLACT [Concomitant]
     Indication: RHEUMATOID ARTHRITIS
     Route: 041
     Dates: start: 20120313, end: 20120314
  3. PREDNISOLONE [Concomitant]
     Indication: RHEUMATOID ARTHRITIS
     Route: 048
     Dates: start: 20120313, end: 20120318
  4. ALLEGRA [Concomitant]
     Indication: HYPERSENSITIVITY
     Route: 048
     Dates: end: 20120326
  5. RINDERON [Concomitant]
     Indication: RHEUMATOID ARTHRITIS
     Route: 041
     Dates: start: 20120313, end: 20120314
  6. ALL OTHER THERAPEUTICS [Concomitant]
     Indication: RHEUMATOID ARTHRITIS
     Route: 041
     Dates: start: 20120313, end: 20120314

REACTIONS (2)
  - Sudden death [Fatal]
  - Drug effect decreased [Unknown]
